FAERS Safety Report 25656670 (Version 2)
Quarter: 2025Q4

REPORT INFORMATION
  Report Type: Spontaneous
  Country: US (occurrence: US)
  Receive Date: 20250807
  Receipt Date: 20251007
  Transmission Date: 20260119
  Serious: Yes (Hospitalization, Other)
  Sender: NOVO NORDISK
  Company Number: US-NOVOPROD-1492139

PATIENT
  Age: 45 Year
  Sex: Female
  Weight: 117.91 kg

DRUGS (4)
  1. OZEMPIC [Suspect]
     Active Substance: SEMAGLUTIDE
     Indication: Weight decreased
     Dosage: 1 MG (RESTARTED)
     Dates: start: 20250401
  2. OZEMPIC [Suspect]
     Active Substance: SEMAGLUTIDE
     Indication: Diabetes mellitus
     Dosage: UNK
     Dates: start: 2024
  3. SERTRALINE [Concomitant]
     Active Substance: SERTRALINE HYDROCHLORIDE
     Indication: Anxiety
     Dosage: 200 MG/100 ML, BID
  4. METHIMAZOLE [Concomitant]
     Active Substance: METHIMAZOLE
     Indication: Hyperthyroidism
     Dosage: UNK

REACTIONS (10)
  - Depression [Not Recovered/Not Resolved]
  - Sinusitis [Unknown]
  - Bronchitis [Recovered/Resolved]
  - Inflammation [Recovered/Resolved]
  - Lymphadenopathy [Unknown]
  - Ear discomfort [Unknown]
  - Dysphagia [Unknown]
  - Vomiting [Recovered/Resolved]
  - Fatigue [Unknown]
  - Diarrhoea [Not Recovered/Not Resolved]

NARRATIVE: CASE EVENT DATE: 20250101
